FAERS Safety Report 8102792-7 (Version None)
Quarter: 2012Q1

REPORT INFORMATION
  Report Type: 
  Country: None (occurrence: None)
  Receive Date: 20120127
  Receipt Date: 20120120
  Transmission Date: 20120608
  Serious: Yes (Hospitalization)
  Sender: FDA-Public Use
  Company Number: 2012SP003951

PATIENT
  Age: 42 Year
  Sex: Male

DRUGS (6)
  1. ESCITALOPRAM [Concomitant]
  2. BOCEPREVIR (SCH-503034) [Suspect]
     Indication: PRODUCT USED FOR UNKNOWN INDICATION
  3. PEGASYS [Suspect]
     Indication: HEPATITIS C
     Dosage: 180 MCG;QW;
     Dates: start: 20110801, end: 20120101
  4. RIBAVIRIN [Suspect]
     Indication: PRODUCT USED FOR UNKNOWN INDICATION
  5. SEROQUEL [Concomitant]
  6. SODIUM CHLORIDE [Concomitant]

REACTIONS (1)
  - PSYCHOTIC DISORDER [None]
